FAERS Safety Report 6921205-1 (Version None)
Quarter: 2010Q3

REPORT INFORMATION
  Report Type: 
  Country: None (occurrence: None)
  Receive Date: 20100812
  Receipt Date: 20100804
  Transmission Date: 20110219
  Serious: Yes (Hospitalization)
  Sender: FDA-Public Use
  Company Number: A0865968A

PATIENT
  Age: 45 Year
  Sex: Male
  Weight: 139.5 kg

DRUGS (11)
  1. AVANDIA [Suspect]
     Indication: DIABETES MELLITUS
     Dosage: 4MG TWICE PER DAY
     Route: 048
     Dates: start: 20020101
  2. CLOMIPRAMINE [Concomitant]
  3. CLONAZEPAM [Concomitant]
  4. ENALAPRIL [Concomitant]
  5. GABAPENTIN [Concomitant]
  6. GLYBURIDE [Concomitant]
  7. METFORMIN [Concomitant]
  8. METOPROLOL TARTRATE [Concomitant]
  9. NAPROXEN [Concomitant]
  10. XANAX [Concomitant]
  11. ZOCOR [Concomitant]

REACTIONS (4)
  - CARDIAC FAILURE CONGESTIVE [None]
  - HYPERHIDROSIS [None]
  - MICROANGIOPATHY [None]
  - MYOCARDIAL ISCHAEMIA [None]
